FAERS Safety Report 6982574-X (Version None)
Quarter: 2010Q3

REPORT INFORMATION
  Report Type: 
  Country: None (occurrence: None)
  Receive Date: 20100914
  Receipt Date: 20100210
  Transmission Date: 20110219
  Serious: Yes (Other)
  Sender: FDA-Public Use
  Company Number: US-PFIZER INC-2010018303

PATIENT

DRUGS (2)
  1. LYRICA [Suspect]
     Indication: FIBROMYALGIA
     Dosage: UNK
     Dates: end: 20090101
  2. LYRICA [Suspect]
     Indication: PAIN

REACTIONS (2)
  - AMNESIA [None]
  - DRUG HYPERSENSITIVITY [None]
